FAERS Safety Report 26069339 (Version 1)
Quarter: 2025Q4

REPORT INFORMATION
  Report Type: Spontaneous
  Country: US (occurrence: US)
  Receive Date: 20251120
  Receipt Date: 20251120
  Transmission Date: 20260117
  Serious: No
  Sender: AMNEAL
  Company Number: US-AMNEAL PHARMACEUTICALS-2025-AMRX-03279

PATIENT

DRUGS (2)
  1. CREXONT [Suspect]
     Active Substance: CARBIDOPA\LEVODOPA
     Indication: Parkinson^s disease
     Dosage: 70/280 MG, 3 /DAY
     Route: 048
     Dates: start: 20250814
  2. CREXONT [Suspect]
     Active Substance: CARBIDOPA\LEVODOPA
     Dosage: 70/280MG AND 52.5/210MG, 3 /DAY
     Route: 048
     Dates: start: 202508

REACTIONS (2)
  - Therapeutic response shortened [Recovering/Resolving]
  - Drug effect less than expected [Unknown]
